FAERS Safety Report 10787712 (Version 2)
Quarter: 2015Q2

REPORT INFORMATION
  Report Type: Report from Study
  Country: US (occurrence: US)
  Receive Date: 20150212
  Receipt Date: 20150420
  Transmission Date: 20150821
  Serious: Yes (Other)
  Sender: FDA-Public Use
  Company Number: US-BIOGENIDEC-2015BI013037

PATIENT
  Age: 35 Year
  Sex: Female
  Weight: 55 kg

DRUGS (16)
  1. METHOCARBAMOL. [Concomitant]
     Active Substance: METHOCARBAMOL
     Route: 042
  2. METHOCARBAMOL. [Concomitant]
     Active Substance: METHOCARBAMOL
     Route: 048
  3. PROMETHAZINE [Concomitant]
     Active Substance: PROMETHAZINE\PROMETHAZINE HYDROCHLORIDE
     Indication: VOMITING
     Route: 048
  4. SERTRALINE [Concomitant]
     Active Substance: SERTRALINE HYDROCHLORIDE
     Route: 048
  5. DIOLOFENAC SODIUM [Concomitant]
     Indication: PAIN
     Route: 048
  6. AMLODIPINE [Concomitant]
     Active Substance: AMLODIPINE BESYLATE
     Route: 048
  7. MINOCYLINE [Concomitant]
     Route: 048
  8. FIOROCET [Concomitant]
     Indication: PAIN
     Route: 048
  9. HYDROCODONE BITARTRATE AND ACETAMINOPHEN [Concomitant]
     Active Substance: ACETAMINOPHEN\HYDROCODONE BITARTRATE
  10. REBIF [Concomitant]
     Active Substance: INTERFERON BETA-1A
     Route: 058
  11. LYRICA [Concomitant]
     Active Substance: PREGABALIN
     Route: 048
  12. ZOLPIDEM [Concomitant]
     Active Substance: ZOLPIDEM\ZOLPIDEM TARTRATE
     Indication: SLEEP DISORDER
     Route: 048
  13. PROMETHAZINE [Concomitant]
     Active Substance: PROMETHAZINE\PROMETHAZINE HYDROCHLORIDE
     Indication: NAUSEA
     Route: 048
  14. AVONEX [Suspect]
     Active Substance: INTERFERON BETA-1A
     Indication: MULTIPLE SCLEROSIS
     Route: 030
     Dates: start: 20110426
  15. FENTANYL TRANSDERMAL FILM [Concomitant]
  16. COLACE [Concomitant]
     Active Substance: DOCUSATE SODIUM
     Indication: CONSTIPATION
     Route: 048

REACTIONS (2)
  - Influenza like illness [Unknown]
  - Gallbladder operation [Unknown]

NARRATIVE: CASE EVENT DATE: 2013
